FAERS Safety Report 19806381 (Version 17)
Quarter: 2023Q4

REPORT INFORMATION
  Report Type: Other
  Country: DE (occurrence: None)
  Receive Date: 20210909
  Receipt Date: 20231221
  Transmission Date: 20240109
  Serious: Yes (Other)
  Sender: FDA-Public Use
  Company Number: DE-ROCHE-2730131

PATIENT
  Age: 55 Year
  Sex: Female

DRUGS (13)
  1. OCREVUS [Suspect]
     Active Substance: OCRELIZUMAB
     Indication: Secondary progressive multiple sclerosis
     Dosage: 1ST INITIAL DOSE THEN SUBSEQUENT DOSE ON: 07/DEC/2020 (300 MG), 26/SEP/2022(4TH MAINTENANCE DOSE)?60
     Route: 042
     Dates: start: 20201123
  2. OCREVUS [Suspect]
     Active Substance: OCRELIZUMAB
     Dosage: NEXT INFUSION 600 MG (3RD MAINTENANCE DOSE) ON 11/APR/2022
     Route: 042
     Dates: start: 20210506
  3. OCREVUS [Suspect]
     Active Substance: OCRELIZUMAB
     Route: 042
  4. MODERNA COVID-19 VACCINE [Suspect]
     Active Substance: ELASOMERAN
     Indication: COVID-19 prophylaxis
     Dosage: MODERNA?ON 13/APR/2021, SHE RECEIVED THE SECOND DOSE OF COVID-19 VACCINE.
     Route: 065
     Dates: start: 20210314
  5. COMIRNATY (TOZINAMERAN) [Suspect]
     Active Substance: TOZINAMERAN
     Indication: COVID-19 prophylaxis
     Dosage: THIRD SARS-COV-2 VACCINE
     Route: 065
     Dates: start: 20210909
  6. COMIRNATY (TOZINAMERAN) [Suspect]
     Active Substance: TOZINAMERAN
     Dosage: 4TH SARS-COV-2 VACCINE AND NEXT DOSE 09.09.2021
     Route: 065
     Dates: start: 20220311
  7. SPIKEVAX (ELASOMERAN) [Suspect]
     Active Substance: ELASOMERAN
     Indication: COVID-19 prophylaxis
     Route: 065
     Dates: start: 20210314
  8. SPIKEVAX (ELASOMERAN) [Suspect]
     Active Substance: ELASOMERAN
     Route: 065
     Dates: start: 20210413
  9. LEVOTHYROXINE [Concomitant]
     Active Substance: LEVOTHYROXINE
  10. GABAPENTIN [Concomitant]
     Active Substance: GABAPENTIN
     Dosage: THREE TIMES DAILY 2 DOSES AND AT NIGHT ONE TIME 3 DOSES
  11. NABIXIMOLS [Concomitant]
     Active Substance: NABIXIMOLS
     Dosage: THREE TO FOUR TIMES DAILY A PUFF
  12. TIZANIDINE HYDROCHLORIDE [Concomitant]
     Active Substance: TIZANIDINE HYDROCHLORIDE
     Dosage: THREE TO FOUR TIMES DAILY
  13. AMLODIPINE BESYLATE [Concomitant]
     Active Substance: AMLODIPINE BESYLATE

REACTIONS (15)
  - Cystitis bacterial [Recovered/Resolved]
  - Fatigue [Recovered/Resolved]
  - Headache [Recovered/Resolved]
  - Myalgia [Recovered/Resolved]
  - Pain in extremity [Recovered/Resolved]
  - Arthralgia [Recovered/Resolved]
  - Off label use [Unknown]
  - Gait disturbance [Recovered/Resolved]
  - Decreased immune responsiveness [Unknown]
  - Lymphadenopathy [Recovered/Resolved]
  - Pain in extremity [Recovered/Resolved]
  - Cystitis noninfective [Recovered/Resolved]
  - Urine analysis abnormal [Unknown]
  - Malaise [Recovered/Resolved]
  - Fatigue [Recovered/Resolved]

NARRATIVE: CASE EVENT DATE: 20201123
